FAERS Safety Report 23430737 (Version 2)
Quarter: 2024Q1

REPORT INFORMATION
  Report Type: Spontaneous
  Country: SK (occurrence: SK)
  Receive Date: 20240123
  Receipt Date: 20240212
  Transmission Date: 20240410
  Serious: Yes (Other)
  Sender: FDA-Public Use
  Company Number: SK-JNJFOC-20240145134

PATIENT
  Sex: Male

DRUGS (5)
  1. TECVAYLI [Suspect]
     Active Substance: TECLISTAMAB-CQYV
     Indication: Product used for unknown indication
     Route: 065
     Dates: start: 20230317
  2. TECVAYLI [Suspect]
     Active Substance: TECLISTAMAB-CQYV
     Route: 065
     Dates: start: 20231114
  3. TECVAYLI [Suspect]
     Active Substance: TECLISTAMAB-CQYV
     Route: 065
     Dates: start: 20231219
  4. TECVAYLI [Suspect]
     Active Substance: TECLISTAMAB-CQYV
     Route: 065
     Dates: start: 20231221
  5. TECVAYLI [Suspect]
     Active Substance: TECLISTAMAB-CQYV
     Route: 065
     Dates: start: 20231227

REACTIONS (4)
  - Superinfection bacterial [Unknown]
  - Candida infection [Unknown]
  - Post-acute COVID-19 syndrome [Unknown]
  - COVID-19 [Unknown]

NARRATIVE: CASE EVENT DATE: 20231122
